FAERS Safety Report 4979521-9 (Version None)
Quarter: 2006Q2

REPORT INFORMATION
  Report Type: 
  Country: None (occurrence: None)
  Receive Date: 20060418
  Receipt Date: 20060404
  Transmission Date: 20061013
  Serious: Yes (Death)
  Sender: FDA-Public Use
  Company Number: GB200604000618

PATIENT
  Age: 34 Year
  Sex: Male

DRUGS (8)
  1. PROZAC [Suspect]
     Dosage: UNK
     Route: 065
  2. CLOZARIL [Concomitant]
  3. CHLORPROMAZINE [Concomitant]
  4. FERROUS SULPHATE (FERROUS SULFATE) [Concomitant]
  5. ZIMOVANE (ZOPICLONE) [Concomitant]
  6. PROCYCLIDINE HYDROCHLORIDE 2MG TAB [Concomitant]
  7. THIAMINE (THIAMINE) [Concomitant]
  8. PANTOPRAZOLE SODIUM [Concomitant]

REACTIONS (4)
  - DRUG LEVEL INCREASED [None]
  - FAECALOMA [None]
  - ILEUS PARALYTIC [None]
  - REFUSAL OF TREATMENT BY PATIENT [None]
